FAERS Safety Report 21531390 (Version 1)
Quarter: 2022Q4

REPORT INFORMATION
  Report Type: Spontaneous
  Country: US (occurrence: None)
  Receive Date: 20221028
  Receipt Date: 20221028
  Transmission Date: 20230112
  Serious: Yes (Hospitalization)
  Sender: FDA-Public Use
  Company Number: None

PATIENT
  Age: 76 Year
  Sex: Male
  Weight: 79.38 kg

DRUGS (1)
  1. IBRUTINIB [Suspect]
     Active Substance: IBRUTINIB
     Dates: start: 20200817, end: 20211206

REACTIONS (6)
  - Pain [None]
  - Rash [None]
  - Neuralgia [None]
  - Electric shock sensation [None]
  - Urticaria [None]
  - Acute kidney injury [None]

NARRATIVE: CASE EVENT DATE: 20211206
